FAERS Safety Report 22048415 (Version 1)
Quarter: 2023Q1

REPORT INFORMATION
  Report Type: Other
  Country: CA (occurrence: CA)
  Receive Date: 20230301
  Receipt Date: 20230301
  Transmission Date: 20230417
  Serious: Yes (Other)
  Sender: FDA-Public Use
  Company Number: CA-ASPEN-GLO2023CA000954

PATIENT

DRUGS (6)
  1. DESOGESTREL [Suspect]
     Active Substance: DESOGESTREL
     Indication: Product used for unknown indication
     Dosage: UNK
     Route: 048
  2. NEXPLANON [Suspect]
     Active Substance: ETONOGESTREL
     Indication: Contraception
     Dosage: 1 DOSAGE FORM, 1 DOSAGE TOTAL
     Route: 059
  3. FLAGYL [Concomitant]
     Active Substance: METRONIDAZOLE\METRONIDAZOLE HYDROCHLORIDE
     Indication: Bacterial vaginosis
     Dosage: 500 MG, BID
     Route: 048
  4. FLUCONAZOLE [Concomitant]
     Active Substance: FLUCONAZOLE
     Indication: Product used for unknown indication
     Dosage: 150 MG, QD
     Route: 048
  5. FERROUS SULFATE ANHYDROUS [Concomitant]
     Active Substance: FERROUS SULFATE ANHYDROUS
     Indication: Product used for unknown indication
     Dosage: 1 DOSAGE FORM, QD
     Route: 048
  6. ROSUVASTATIN [Concomitant]
     Active Substance: ROSUVASTATIN
     Indication: Product used for unknown indication
     Dosage: 10 MG, QD
     Route: 048

REACTIONS (5)
  - Drug ineffective [Unknown]
  - Pregnancy on oral contraceptive [Unknown]
  - Pregnancy with implant contraceptive [Unknown]
  - Product use issue [Unknown]
  - Unintended pregnancy [Unknown]
